FAERS Safety Report 5531907-X (Version None)
Quarter: 2007Q4

REPORT INFORMATION
  Report Type: 
  Country: None (occurrence: None)
  Receive Date: 20071203
  Receipt Date: 20071123
  Transmission Date: 20080405
  Serious: Yes (Death, Life-Threatening, Hospitalization, Other)
  Sender: FDA-Public Use
  Company Number: DE-ABBOTT-07P-062-0423560-00

PATIENT
  Sex: Male
  Weight: 80 kg

DRUGS (2)
  1. TARKA [Suspect]
     Indication: DRUG USE FOR UNKNOWN INDICATION
     Dosage: 15 TABLETS IN ONE DOSE
     Dates: start: 20071104, end: 20071104
  2. TARKA [Suspect]

REACTIONS (7)
  - CEREBRAL INFARCTION [None]
  - HEMIPARESIS [None]
  - HYPERGLYCAEMIA [None]
  - HYPOTENSION [None]
  - HYPOXIA [None]
  - METABOLIC ACIDOSIS [None]
  - SUICIDE ATTEMPT [None]
